FAERS Safety Report 5058418-2 (Version None)
Quarter: 2006Q2

REPORT INFORMATION
  Report Type: 
  Country: None (occurrence: None)
  Receive Date: 20060626
  Receipt Date: 20050222
  Transmission Date: 20061013
  Serious: Yes (Hospitalization)
  Sender: FDA-Public Use
  Company Number: 26241

PATIENT
  Age: 86 Year
  Sex: Female

DRUGS (5)
  1. HIPREX [Suspect]
     Indication: INFLAMMATION
     Dosage: 2 GM ( 2 IN 1 DAY(S) ), ORAL
     Route: 048
     Dates: start: 20021001, end: 20040917
  2. OXYCONTIN [Concomitant]
  3. PREDNISONE [Concomitant]
  4. LEVAXIN (150 MG) [Concomitant]
  5. OXYNORM [Concomitant]

REACTIONS (3)
  - DISCOMFORT [None]
  - GENITAL PAIN FEMALE [None]
  - GENITAL ULCERATION [None]
